FAERS Safety Report 14888818 (Version 1)
Quarter: 2018Q2

REPORT INFORMATION
  Report Type: Spontaneous
  Country: GR (occurrence: GR)
  Receive Date: 20180513
  Receipt Date: 20180513
  Transmission Date: 20180711
  Serious: Yes (Other)
  Sender: FDA-Public Use
  Company Number: GR-BAXTER-2018BAX013678

PATIENT
  Age: 69 Year
  Sex: Male

DRUGS (6)
  1. DEXAMETHASONE. [Suspect]
     Active Substance: DEXAMETHASONE
     Indication: PLASMA CELL MYELOMA
     Dosage: DOSAGE FORM: UNSPECIFIED, ON DAYS 1, 8, 15, AND 22
     Route: 048
  2. DEXAMETHASONE. [Suspect]
     Active Substance: DEXAMETHASONE
     Dosage: DOSAGE FORM: UNSPECIFIED, THIRD AND FOURTH CYCLE
     Route: 048
     Dates: start: 201611
  3. ENDOXAN 50 MG - COATED TABLETS [Suspect]
     Active Substance: CYCLOPHOSPHAMIDE
     Indication: PLASMA CELL MYELOMA
     Dosage: DOSAGE FORM: UNSPECIFIED, ON DAYS 1, 8, 15
     Route: 048
  4. ENDOXAN 50 MG - COATED TABLETS [Suspect]
     Active Substance: CYCLOPHOSPHAMIDE
     Dosage: DOSAGE FORM: UNSPECIFIED, THIRD AND FOURTH CYCLE
     Route: 048
     Dates: start: 201611
  5. VELCADE [Suspect]
     Active Substance: BORTEZOMIB
     Indication: PLASMA CELL MYELOMA
     Dosage: DOSAGE FORM: LYOPHILIZED POWDER, THIRD AND FOURTH CYCLE
     Route: 065
     Dates: start: 201611
  6. VELCADE [Suspect]
     Active Substance: BORTEZOMIB
     Dosage: DOSAGE FORM: LYOPHILIZED POWDER, 1.3 MG/DL, DAYS 1, 8, 15, 22 PLUS
     Route: 065

REACTIONS (2)
  - Diabetes mellitus inadequate control [Unknown]
  - Disease progression [Unknown]

NARRATIVE: CASE EVENT DATE: 201612
